FAERS Safety Report 9748593 (Version 1)
Quarter: 2013Q4

REPORT INFORMATION
  Report Type: Spontaneous
  Country: US (occurrence: None)
  Receive Date: 20131209
  Receipt Date: 20131209
  Transmission Date: 20140711
  Serious: Yes (Hospitalization)
  Sender: FDA-Public Use
  Company Number: None

PATIENT
  Age: 76 Year
  Sex: Male
  Weight: 70 kg

DRUGS (9)
  1. PEMETREXED [Suspect]
     Indication: LUNG NEOPLASM MALIGNANT
     Dates: start: 201209, end: 20131112
  2. BEVACIZUMAB [Suspect]
     Dates: start: 20120920, end: 20131112
  3. DEXAMETHASONE [Concomitant]
  4. COMPAZINE [Concomitant]
  5. COUMADIN [Concomitant]
  6. FOLIC ACID [Concomitant]
  7. PREDNISONE [Concomitant]
  8. SINGULAIR [Concomitant]
  9. VITAMIN B-12 [Concomitant]

REACTIONS (1)
  - Dyspnoea [None]
